FAERS Safety Report 18657413 (Version 2)
Quarter: 2021Q1

REPORT INFORMATION
  Report Type: Spontaneous
  Country: US (occurrence: US)
  Receive Date: 20201223
  Receipt Date: 20210105
  Transmission Date: 20210419
  Serious: Yes (Other)
  Sender: FDA-Public Use
  Company Number: US-PFIZER INC-2016519631

PATIENT
  Age: 79 Year
  Sex: Female

DRUGS (4)
  1. LYRICA [Suspect]
     Active Substance: PREGABALIN
     Dosage: 225 MG, DAILY (TAKE ONE CAP PO QAM AND TWO CAPS QHS)
     Route: 048
  2. LYRICA [Suspect]
     Active Substance: PREGABALIN
     Dosage: 75 MG, 4X/DAY [TAKE 1 CAPSULE Q AM  TAKE 1 CAPSULE AT NOON AND TAKE 2 CAPSULE Q HS]
     Route: 048
  3. LYRICA [Suspect]
     Active Substance: PREGABALIN
     Indication: FIBROMYALGIA
     Dosage: 300 MG, DAILY (1 CAPSULE EVERY MORNING, 1 CAPSULE AT NOON AND 2 CAPSULES AT BED TIME)
     Route: 048
     Dates: start: 20161024
  4. LYRICA [Suspect]
     Active Substance: PREGABALIN
     Dosage: 400 MG, ONCE EVERY MORNING, ONE AT NOON AND TWO AT BEDTIME
     Route: 048

REACTIONS (1)
  - Deafness [Unknown]
